FAERS Safety Report 8457473-7 (Version None)
Quarter: 2012Q2

REPORT INFORMATION
  Report Type: 
  Country: None (occurrence: None)
  Receive Date: 20120622
  Receipt Date: 20120611
  Transmission Date: 20120825
  Serious: Yes (Hospitalization)
  Sender: FDA-Public Use
  Company Number: FR-BRISTOL-MYERS SQUIBB COMPANY-16586786

PATIENT
  Age: 44 Year
  Sex: Male
  Weight: 65 kg

DRUGS (4)
  1. CETUXIMAB [Suspect]
     Indication: HEAD AND NECK CANCER
     Dosage: CETUXIMAB IV INFUSION; LAST INFUSION ON 07-FEB-2011 (455 MG).
     Route: 042
     Dates: start: 20101227, end: 20110207
  2. CISPLATIN [Suspect]
     Indication: HEAD AND NECK CANCER
     Dosage: 75 MG/M2, X1/CYCLE; LAST DOSE ON 29-NOV-2010 (138 MG); TOTAL 3 INFUSIONS.
     Dates: start: 20101018, end: 20101129
  3. FLUOROURACIL [Suspect]
     Indication: HEAD AND NECK CANCER
     Dosage: 750 MG/M2, X5/CYCLE; LAST DOSE ON 29-NOV-2010 (6900 MG); TOTAL 3 INFUSIONS.
     Dates: start: 20101018, end: 20101129
  4. DOCETAXEL [Suspect]
     Indication: HEAD AND NECK CANCER
     Dosage: 75 MG/M2, X1/CYCLE; LAST DOSE ON 29-NOV-2010 (138 MG); TOTAL 3 INFUSIONS.
     Dates: start: 20101018, end: 20101129

REACTIONS (1)
  - DERMATITIS ALLERGIC [None]
